FAERS Safety Report 22745442 (Version 3)
Quarter: 2023Q4

REPORT INFORMATION
  Report Type: Report from Study
  Country: CA (occurrence: CA)
  Receive Date: 20230725
  Receipt Date: 20231031
  Transmission Date: 20240110
  Serious: Yes (Other)
  Sender: FDA-Public Use
  Company Number: CA-JNJFOC-20230649070

PATIENT
  Age: 14 Year
  Sex: Female
  Weight: 89 kg

DRUGS (4)
  1. REMICADE [Suspect]
     Active Substance: INFLIXIMAB
     Indication: Colitis ulcerative
     Route: 042
     Dates: start: 20210111
  2. REMICADE [Suspect]
     Active Substance: INFLIXIMAB
     Dosage: ON 20-JUL-2023, THE PATIENT RECEIVED HER 32ND REMICADE INFUSION
     Route: 042
  3. PREVACID [Concomitant]
     Active Substance: LANSOPRAZOLE
     Indication: Product used for unknown indication
     Route: 065
  4. IRON [Concomitant]
     Active Substance: IRON
     Indication: Blood test abnormal
     Route: 065

REACTIONS (5)
  - Haematochezia [Recovering/Resolving]
  - Angina pectoris [Recovering/Resolving]
  - Diarrhoea [Recovering/Resolving]
  - Abdominal pain [Recovering/Resolving]
  - Frequent bowel movements [Recovering/Resolving]

NARRATIVE: CASE EVENT DATE: 20230101
